FAERS Safety Report 5709704-1 (Version None)
Quarter: 2008Q2

REPORT INFORMATION
  Report Type: 
  Country: None (occurrence: None)
  Receive Date: 20080418
  Receipt Date: 20080411
  Transmission Date: 20081010
  Serious: Yes (Death, Other)
  Sender: FDA-Public Use
  Company Number: PHBS2008IT04014

PATIENT
  Sex: Female

DRUGS (4)
  1. ZOMETA [Suspect]
     Indication: METASTASES TO BONE
  2. FLUOROURACIL [Concomitant]
  3. LEUCOVORIN CALCIUM [Concomitant]
  4. NAVELBINE [Concomitant]

REACTIONS (5)
  - BONE DISORDER [None]
  - DEBRIDEMENT [None]
  - DISEASE PROGRESSION [None]
  - OSTEOMYELITIS [None]
  - OSTEONECROSIS [None]
